FAERS Safety Report 25214381 (Version 1)
Quarter: 2025Q2

REPORT INFORMATION
  Report Type: Spontaneous
  Country: JO (occurrence: JO)
  Receive Date: 20250418
  Receipt Date: 20250418
  Transmission Date: 20250717
  Serious: Yes (Other)
  Sender: Pangea Pharmaceuticals
  Company Number: JO-PANGEAPHARMA-2025PAN00002

PATIENT
  Age: 19 Month
  Sex: Male

DRUGS (7)
  1. DEXAMETHASONE [Suspect]
     Active Substance: DEXAMETHASONE
     Indication: B-cell type acute leukaemia
  2. DESMOPRESSIN [Concomitant]
     Active Substance: DESMOPRESSIN
     Indication: Diabetes insipidus
  3. AMILORIDE HCL W/ HYDROCHLOROTHIAZIDE [Concomitant]
     Active Substance: AMILORIDE HYDROCHLORIDE\HYDROCHLOROTHIAZIDE
     Indication: Diabetes insipidus
  4. VINCRISTINE [Concomitant]
     Active Substance: VINCRISTINE
  5. PEGASPARGASE [Concomitant]
     Active Substance: PEGASPARGASE
  6. METHOTREXATE [Concomitant]
     Active Substance: METHOTREXATE
     Route: 037
  7. Cytrabine [Concomitant]
     Route: 037

REACTIONS (2)
  - Polyuria [Recovered/Resolved]
  - Polydipsia [Recovered/Resolved]
